FAERS Safety Report 5594382-5 (Version None)
Quarter: 2008Q1

REPORT INFORMATION
  Report Type: 
  Country: None (occurrence: None)
  Receive Date: 20080117
  Receipt Date: 20080109
  Transmission Date: 20080703
  Serious: Yes (Hospitalization, Other)
  Sender: FDA-Public Use
  Company Number: FR-BRISTOL-MYERS SQUIBB COMPANY-14036024

PATIENT
  Age: 49 Year
  Sex: Male
  Weight: 60 kg

DRUGS (8)
  1. REYATAZ [Suspect]
     Indication: HIV INFECTION
     Route: 048
     Dates: start: 20070802, end: 20070821
  2. NORVIR [Interacting]
     Indication: HIV INFECTION
     Route: 048
     Dates: start: 20070802, end: 20070821
  3. TRUVADA [Interacting]
     Indication: HIV INFECTION
     Dates: start: 20061017, end: 20070821
  4. PROGRAF [Interacting]
     Indication: LIVER TRANSPLANT
     Route: 048
     Dates: start: 20061017, end: 20070821
  5. KARDEGIC [Concomitant]
     Indication: ISCHAEMIC STROKE
     Route: 048
  6. FUZEON [Concomitant]
     Indication: HIV INFECTION
     Dates: end: 20070628
  7. SUBUTEX [Concomitant]
     Indication: DRUG DEPENDENCE
     Route: 048
  8. DELURSAN [Concomitant]
     Indication: CHOLELITHIASIS

REACTIONS (3)
  - DRUG INTERACTION [None]
  - HYPERKALAEMIA [None]
  - RENAL FAILURE [None]
